FAERS Safety Report 7991154-9 (Version None)
Quarter: 2011Q4

REPORT INFORMATION
  Report Type: 
  Country: None (occurrence: None)
  Receive Date: 20111215
  Receipt Date: 20111205
  Transmission Date: 20120403
  Serious: Yes (Other)
  Sender: FDA-Public Use
  Company Number: ACO_22244_2010

PATIENT
  Age: 54 Year
  Sex: Female
  Weight: 47 kg

DRUGS (8)
  1. AMPYRA [Suspect]
     Indication: MULTIPLE SCLEROSIS
     Dosage: 10 MG, BID, ORAL
     Route: 048
     Dates: start: 20100408, end: 20100601
  2. DITROPAN [Concomitant]
  3. SYNTHROID [Concomitant]
  4. URECHOLINE [Concomitant]
  5. PROZAC [Concomitant]
  6. AVONEX [Concomitant]
  7. TYSABRI [Suspect]
     Indication: MULTIPLE SCLEROSIS
     Dosage: [ONE INFUSION ONCE A MONTH], INTRAVENOUS
     Route: 042
     Dates: start: 20100412
  8. PRILOSEC [Concomitant]

REACTIONS (8)
  - GAIT DISTURBANCE [None]
  - COORDINATION ABNORMAL [None]
  - BALANCE DISORDER [None]
  - FALL [None]
  - RIB FRACTURE [None]
  - CONTUSION [None]
  - MULTIPLE SCLEROSIS RELAPSE [None]
  - DRUG INEFFECTIVE [None]
